FAERS Safety Report 5576543-4 (Version None)
Quarter: 2007Q4

REPORT INFORMATION
  Report Type: 
  Country: None (occurrence: None)
  Receive Date: 20071228
  Receipt Date: 20071227
  Transmission Date: 20080405
  Serious: Yes (Disabling)
  Sender: FDA-Public Use
  Company Number: B0500999A

PATIENT
  Age: 53 Year
  Sex: Female
  Weight: 54 kg

DRUGS (11)
  1. ALKERAN [Suspect]
     Indication: STEM CELL TRANSPLANT
     Route: 042
     Dates: start: 20070721, end: 20070721
  2. FLUDARABINE PHOSPHATE [Suspect]
     Indication: STEM CELL TRANSPLANT
     Route: 042
     Dates: start: 20070718, end: 20070721
  3. OZEX [Suspect]
     Route: 048
     Dates: start: 20070709, end: 20070808
  4. MAXIPIME [Suspect]
     Route: 042
     Dates: start: 20070721, end: 20070803
  5. NEUTROGIN [Concomitant]
     Dates: start: 20070728, end: 20070803
  6. CYCLOSPORINE [Concomitant]
     Indication: IMMUNOSUPPRESSION
     Route: 065
     Dates: start: 20070722
  7. URSO 250 [Concomitant]
     Route: 048
     Dates: start: 20070709
  8. MUCOSTA [Concomitant]
     Route: 048
     Dates: start: 20070709
  9. DIFLUCAN [Concomitant]
     Route: 048
     Dates: start: 20070709
  10. ZOVIRAX [Concomitant]
     Route: 048
     Dates: start: 20070716, end: 20070817
  11. FLAGYL [Concomitant]
     Route: 048
     Dates: start: 20070802, end: 20070821

REACTIONS (2)
  - PSEUDOMEMBRANOUS COLITIS [None]
  - PYREXIA [None]
